FAERS Safety Report 23800527 (Version 1)
Quarter: 2024Q2

REPORT INFORMATION
  Report Type: Spontaneous
  Country: US (occurrence: US)
  Receive Date: 20240430
  Receipt Date: 20240430
  Transmission Date: 20240716
  Serious: Yes (Death, Life-Threatening, Hospitalization, Other)
  Sender: FDA-Public Use
  Company Number: US-DSPHARMA-2024SUN000326

PATIENT

DRUGS (3)
  1. LURASIDONE HYDROCHLORIDE [Suspect]
     Active Substance: LURASIDONE HYDROCHLORIDE
     Indication: Schizophrenia
     Dosage: UNK
     Route: 048
  2. VALPROATE SODIUM [Suspect]
     Active Substance: VALPROATE SODIUM
     Indication: Schizophrenia
     Dosage: UNK
  3. QUETIAPINE [Suspect]
     Active Substance: QUETIAPINE
     Indication: Schizophrenia
     Dosage: UNK

REACTIONS (7)
  - Shock [Fatal]
  - Status epilepticus [Fatal]
  - Cardiac arrest [Unknown]
  - Electrocardiogram QT prolonged [Unknown]
  - Delusion [Unknown]
  - Torsade de pointes [Unknown]
  - Distributive shock [Unknown]
